FAERS Safety Report 24378259 (Version 4)
Quarter: 2025Q4

REPORT INFORMATION
  Report Type: Spontaneous
  Country: CA (occurrence: CA)
  Receive Date: 20240930
  Receipt Date: 20251128
  Transmission Date: 20260118
  Serious: Yes (Disabling, Other)
  Sender: PFIZER
  Company Number: CA-PFIZER INC-202300331289

PATIENT
  Age: 59 Year
  Sex: Female

DRUGS (10)
  1. ABRILADA [Suspect]
     Active Substance: ADALIMUMAB-AFZB
     Indication: Rheumatoid arthritis
     Dosage: 40 MG, EVERY 2 WEEKS
     Route: 058
     Dates: start: 20230627, end: 2024
  2. ABRILADA [Suspect]
     Active Substance: ADALIMUMAB-AFZB
     Dosage: 40 MG, WEEKLY
     Route: 058
     Dates: start: 2024, end: 202507
  3. ABRILADA [Suspect]
     Active Substance: ADALIMUMAB-AFZB
     Dosage: 40 MG, EVERY 2 WEEKS
     Route: 058
     Dates: start: 202507
  4. GLICLAZIDE/METFORMIN [Concomitant]
     Indication: Diabetes mellitus
     Dosage: 1 DF
  5. HYDROXYCHLOROQUINE [Concomitant]
     Active Substance: HYDROXYCHLOROQUINE
     Dosage: 400 MG
     Dates: start: 202302
  6. METHOTREXATE [Concomitant]
     Active Substance: METHOTREXATE
     Indication: Rheumatoid arthritis
     Dosage: 20 MG, WEEKLY
     Dates: start: 202212
  7. OXYCODONE [Concomitant]
     Active Substance: OXYCODONE
     Dosage: 1 DF, AS NEEDED (PRN)
  8. PREDNISONE [Concomitant]
     Active Substance: PREDNISONE
     Dosage: 15 MG, TAPERING DOSE
     Dates: start: 202301
  9. PREGABALIN [Concomitant]
     Active Substance: PREGABALIN
     Dosage: 1 DF, 2X/DAY
  10. SULFASALAZINE [Concomitant]
     Active Substance: SULFASALAZINE
     Indication: Rheumatoid arthritis
     Dosage: 1 G, 2X/DAY
     Dates: start: 202302

REACTIONS (4)
  - Spinal stenosis [Not Recovered/Not Resolved]
  - Pain [Not Recovered/Not Resolved]
  - Fibromyalgia [Unknown]
  - Impaired work ability [Not Recovered/Not Resolved]

NARRATIVE: CASE EVENT DATE: 20230101
